FAERS Safety Report 6863029-X (Version None)
Quarter: 2010Q2

REPORT INFORMATION
  Report Type: 
  Country: None (occurrence: None)
  Receive Date: 20100528
  Receipt Date: 20100325
  Transmission Date: 20101027
  Serious: No
  Sender: FDA-Public Use
  Company Number: 009362

PATIENT
  Sex: Female
  Weight: 82.6 kg

DRUGS (14)
  1. LACOSAMIDE [Suspect]
     Indication: CONVULSION
     Dosage: 50 MG BID ORAL
     Route: 048
     Dates: start: 20100324
  2. KEPPRA [Concomitant]
  3. HYDROCORTISONE [Concomitant]
  4. SODIUM CHLORIDE [Concomitant]
  5. NEURONTIN [Concomitant]
  6. LEVOTHYROXINE SODIUM [Concomitant]
  7. FIORICET [Concomitant]
  8. AMBIEN [Concomitant]
  9. TRIMETHOPRIM [Concomitant]
  10. LAMICTAL [Concomitant]
  11. NEXIUM [Concomitant]
  12. ATIVAN [Concomitant]
  13. VITAMIN D [Concomitant]
  14. VALIUM [Concomitant]

REACTIONS (2)
  - DIZZINESS [None]
  - NAUSEA [None]
